FAERS Safety Report 16214373 (Version 2)
Quarter: 2019Q3

REPORT INFORMATION
  Report Type: Spontaneous
  Country: US (occurrence: US)
  Receive Date: 20190418
  Receipt Date: 20190903
  Transmission Date: 20191004
  Serious: Yes (Hospitalization, Other)
  Sender: FDA-Public Use
  Company Number: US-ASTRAZENECA-2019SE55646

PATIENT
  Age: 64 Year
  Sex: Female
  Weight: 81.6 kg

DRUGS (37)
  1. COLESTIPOL [Concomitant]
     Active Substance: COLESTIPOL
  2. CALCITRIOL. [Concomitant]
     Active Substance: CALCITRIOL
  3. SIMVASTATIN. [Concomitant]
     Active Substance: SIMVASTATIN
  4. CALCITRIOL. [Concomitant]
     Active Substance: CALCITRIOL
  5. DOXYCYCLINE. [Concomitant]
     Active Substance: DOXYCYCLINE
  6. CLOPIDOGREL [Concomitant]
     Active Substance: CLOPIDOGREL BISULFATE
  7. VYTORIN [Concomitant]
     Active Substance: EZETIMIBE\SIMVASTATIN
  8. PRILOSEC [Suspect]
     Active Substance: OMEPRAZOLE MAGNESIUM
     Route: 048
     Dates: start: 20140915
  9. PROTONIX [Suspect]
     Active Substance: PANTOPRAZOLE SODIUM
     Dosage: GENERIC
     Route: 065
     Dates: start: 20150606
  10. AZITHROMYCIN ANHYDROUS. [Concomitant]
     Active Substance: AZITHROMYCIN ANHYDROUS
  11. PRAVASTATIN. [Concomitant]
     Active Substance: PRAVASTATIN
  12. FENOFIBRATE. [Concomitant]
     Active Substance: FENOFIBRATE
  13. COREG [Concomitant]
     Active Substance: CARVEDILOL
  14. ATORVASTATIN [Concomitant]
     Active Substance: ATORVASTATIN
  15. CARVEDILOL. [Concomitant]
     Active Substance: CARVEDILOL
  16. PRILOSEC [Suspect]
     Active Substance: OMEPRAZOLE MAGNESIUM
     Route: 048
     Dates: start: 20150501
  17. PRILOSEC [Suspect]
     Active Substance: OMEPRAZOLE MAGNESIUM
     Route: 048
     Dates: start: 20121009
  18. DEXILANT [Suspect]
     Active Substance: DEXLANSOPRAZOLE
     Route: 065
     Dates: start: 20170217, end: 20170402
  19. NIZATIDINE. [Concomitant]
     Active Substance: NIZATIDINE
  20. ALLOPURINOL. [Concomitant]
     Active Substance: ALLOPURINOL
  21. SIMVASTATIN. [Concomitant]
     Active Substance: SIMVASTATIN
  22. NIZATIDINE. [Concomitant]
     Active Substance: NIZATIDINE
  23. PRILOSEC [Suspect]
     Active Substance: OMEPRAZOLE MAGNESIUM
     Route: 048
     Dates: start: 2007, end: 20150317
  24. LOSARTAN. [Concomitant]
     Active Substance: LOSARTAN
  25. AMOXICILLINE [Concomitant]
     Active Substance: AMOXICILLIN
  26. PRILOSEC [Suspect]
     Active Substance: OMEPRAZOLE MAGNESIUM
     Dosage: GENERIC
     Route: 065
     Dates: start: 20130924
  27. PROTONIX [Suspect]
     Active Substance: PANTOPRAZOLE SODIUM
     Route: 065
     Dates: start: 201505, end: 201804
  28. FUROSEMIDE. [Concomitant]
     Active Substance: FUROSEMIDE
  29. LOSARTAN. [Concomitant]
     Active Substance: LOSARTAN
  30. PRILOSEC [Suspect]
     Active Substance: OMEPRAZOLE MAGNESIUM
     Route: 048
     Dates: start: 2008, end: 2015
  31. PRILOSEC OTC [Suspect]
     Active Substance: OMEPRAZOLE MAGNESIUM
     Route: 048
  32. SULFAMETHOXAZOLE [Concomitant]
     Active Substance: SULFAMETHOXAZOLE
  33. HYDRALAZINE [Concomitant]
     Active Substance: HYDRALAZINE HYDROCHLORIDE
  34. TORSEMIDE. [Concomitant]
     Active Substance: TORSEMIDE
  35. HYZAAR [Concomitant]
     Active Substance: HYDROCHLOROTHIAZIDE\LOSARTAN POTASSIUM
  36. COLESTIPOL [Concomitant]
     Active Substance: COLESTIPOL
  37. COLESTIPOL [Concomitant]
     Active Substance: COLESTIPOL

REACTIONS (3)
  - Renal failure [Not Recovered/Not Resolved]
  - Chronic kidney disease [Not Recovered/Not Resolved]
  - Acute kidney injury [Not Recovered/Not Resolved]

NARRATIVE: CASE EVENT DATE: 2017
